FAERS Safety Report 4363821-X (Version None)
Quarter: 2004Q2

REPORT INFORMATION
  Report Type: 
  Country: None (occurrence: None)
  Receive Date: 20040521
  Receipt Date: 20040429
  Transmission Date: 20050107
  Serious: Yes (Death, Life-Threatening, Hospitalization)
  Sender: FDA-Public Use
  Company Number: THYM-10130

PATIENT
  Age: 35 Year
  Sex: Female
  Weight: 63.5 kg

DRUGS (2)
  1. THYMOGLOBULINE [Suspect]
     Indication: RENAL TRANSPLANT
     Dosage: 105 MG IV
     Route: 042
     Dates: start: 20040425, end: 20040425
  2. SOLU-MEDROL [Concomitant]

REACTIONS (13)
  - ANAPHYLACTIC REACTION [None]
  - BRAIN DAMAGE [None]
  - BRAIN HERNIATION [None]
  - BRAIN OEDEMA [None]
  - CIRCULATORY COLLAPSE [None]
  - HAEMODIALYSIS [None]
  - HYPOTENSION [None]
  - HYPOXIA [None]
  - INFUSION RELATED REACTION [None]
  - LACTIC ACIDOSIS [None]
  - RESPIRATORY ARREST [None]
  - SHOCK [None]
  - UNRESPONSIVE TO PAIN STIMULI [None]
